FAERS Safety Report 23351564 (Version 1)
Quarter: 2023Q4

REPORT INFORMATION
  Report Type: Spontaneous
  Country: CN (occurrence: CN)
  Receive Date: 20231229
  Receipt Date: 20231229
  Transmission Date: 20240110
  Serious: Yes (Other)
  Sender: FDA-Public Use
  Company Number: CN-JNJFOC-20231272325

PATIENT
  Age: 26 Year
  Sex: Female
  Weight: 58 kg

DRUGS (1)
  1. CHILDRENS MOTRIN [Suspect]
     Active Substance: IBUPROFEN
     Indication: Feeling cold
     Route: 048
     Dates: start: 20231220

REACTIONS (2)
  - Off label use [Unknown]
  - Hypothermia [Recovering/Resolving]

NARRATIVE: CASE EVENT DATE: 20231220
